FAERS Safety Report 12277177 (Version 1)
Quarter: 2016Q2

REPORT INFORMATION
  Report Type: Spontaneous
  Country: US (occurrence: None)
  Receive Date: 20160415
  Receipt Date: 20160415
  Transmission Date: 20160815
  Serious: Yes (Other)
  Sender: FDA-Public Use
  Company Number: None

PATIENT
  Age: 57 Year
  Sex: Female
  Weight: 56.7 kg

DRUGS (7)
  1. CARISOPRODAL [Concomitant]
  2. VITAMIN D [Concomitant]
     Active Substance: CHOLECALCIFEROL
  3. AXERT [Concomitant]
     Active Substance: ALMOTRIPTAN MALATE
  4. MULTIVITAMIN [Concomitant]
     Active Substance: VITAMINS
  5. RISEDRONATE SODIUM 150 MG, 150 MG SUN PHARMACEUTICAL INDUSTRIES [Suspect]
     Active Substance: RISEDRONATE SODIUM
     Indication: OSTEOPOROSIS
     Dosage: 1 TABLET(S) ONCE A MONTH TAKEN BY MOUTH
     Route: 048
     Dates: start: 20160412
  6. ZANTAC [Concomitant]
     Active Substance: RANITIDINE HYDROCHLORIDE
  7. OMEGA 3 FISH OIL [Concomitant]
     Active Substance: FISH OIL\OMEGA-3 FATTY ACIDS

REACTIONS (9)
  - Activities of daily living impaired [None]
  - Dyspepsia [None]
  - Chills [None]
  - Nausea [None]
  - Abdominal pain [None]
  - Myalgia [None]
  - Headache [None]
  - Diarrhoea [None]
  - Malaise [None]

NARRATIVE: CASE EVENT DATE: 20160412
